FAERS Safety Report 10089672 (Version 1)
Quarter: 2014Q2

REPORT INFORMATION
  Report Type: Spontaneous
  Country: US (occurrence: US)
  Receive Date: 20140421
  Receipt Date: 20140421
  Transmission Date: 20141212
  Serious: No
  Sender: FDA-Public Use
  Company Number: US-PFIZER INC-2014109324

PATIENT
  Age: 54 Year
  Sex: Female
  Weight: 52.15 kg

DRUGS (5)
  1. ALPRAZOLAM [Suspect]
     Indication: SLEEP DISORDER
     Dosage: UNK,DAILY
  2. PROTONIX [Suspect]
     Indication: GASTROOESOPHAGEAL REFLUX DISEASE
     Dosage: 40 MG, 2X/DAY
     Dates: start: 201310
  3. PREDNISOLONE [Suspect]
     Dosage: UNK
  4. OXYCONTIN [Suspect]
     Dosage: UNK
  5. HYDROCODONE [Suspect]
     Indication: PAIN
     Dosage: 7.5/325MG , 3X/DAY
     Dates: end: 20140415

REACTIONS (3)
  - Feeling abnormal [Unknown]
  - Malabsorption [Unknown]
  - Drug screen negative [Unknown]
